FAERS Safety Report 21421587 (Version 1)
Quarter: 2022Q4

REPORT INFORMATION
  Report Type: Spontaneous
  Country: US (occurrence: US)
  Receive Date: 20221007
  Receipt Date: 20221007
  Transmission Date: 20230113
  Serious: Yes (Other)
  Sender: FDA-Public Use
  Company Number: US-SA-2022SA409855

PATIENT
  Sex: Female

DRUGS (3)
  1. NASACORT [Suspect]
     Active Substance: TRIAMCINOLONE ACETONIDE
     Dosage: 2 DF, QD
     Route: 045
  2. NASACORT [Suspect]
     Active Substance: TRIAMCINOLONE ACETONIDE
     Dosage: UNK, 1X
     Route: 045
  3. XYZAL ALLERGY 24HR [Concomitant]
     Active Substance: LEVOCETIRIZINE DIHYDROCHLORIDE
     Dosage: UNK

REACTIONS (5)
  - Hypothermia [Unknown]
  - Hot flush [Unknown]
  - Vomiting [Unknown]
  - Dry mouth [Unknown]
  - Abdominal discomfort [Unknown]
